FAERS Safety Report 17430733 (Version 3)
Quarter: 2020Q3

REPORT INFORMATION
  Report Type: Spontaneous
  Country: US (occurrence: US)
  Receive Date: 20200218
  Receipt Date: 20200720
  Transmission Date: 20201102
  Serious: Yes (Hospitalization)
  Sender: FDA-Public Use
  Company Number: US-BIOCODEX SA-202000030

PATIENT

DRUGS (18)
  1. DIACOMIT [Suspect]
     Active Substance: STIRIPENTOL
     Dosage: 500 MG, 6 ML, THREE TIMES A DAY
     Route: 065
  2. VIMPAT [Concomitant]
     Active Substance: LACOSAMIDE
     Route: 065
  3. ERYTHROMYCIN CULTURELLE [Concomitant]
     Indication: PRODUCT USED FOR UNKNOWN INDICATION
     Route: 065
  4. VITAMIN D [Concomitant]
     Active Substance: VITAMIN D NOS
     Indication: PRODUCT USED FOR UNKNOWN INDICATION
     Route: 065
  5. ONFI [Concomitant]
     Active Substance: CLOBAZAM
     Route: 065
  6. ONFI [Concomitant]
     Active Substance: CLOBAZAM
     Indication: SEVERE MYOCLONIC EPILEPSY OF INFANCY
     Route: 065
  7. NASACORT [Concomitant]
     Active Substance: TRIAMCINOLONE ACETONIDE
     Indication: PRODUCT USED FOR UNKNOWN INDICATION
     Route: 065
  8. DIACOMIT [Suspect]
     Active Substance: STIRIPENTOL
     Indication: SEVERE MYOCLONIC EPILEPSY OF INFANCY
     Dosage: 250 MG, 10 ML, THREE TIMES DAILY
     Route: 048
     Dates: start: 20191213
  9. ONFI [Concomitant]
     Active Substance: CLOBAZAM
     Route: 065
  10. VIMPAT [Concomitant]
     Active Substance: LACOSAMIDE
     Route: 065
  11. VIMPAT [Concomitant]
     Active Substance: LACOSAMIDE
     Route: 065
  12. ONFI [Concomitant]
     Active Substance: CLOBAZAM
     Route: 065
  13. ONFI [Concomitant]
     Active Substance: CLOBAZAM
     Route: 065
  14. TOPAMAX [Concomitant]
     Active Substance: TOPIRAMATE
     Indication: PRODUCT USED FOR UNKNOWN INDICATION
     Route: 065
  15. VIMPAT [Concomitant]
     Active Substance: LACOSAMIDE
     Indication: PRODUCT USED FOR UNKNOWN INDICATION
     Route: 065
  16. VIMPAT [Concomitant]
     Active Substance: LACOSAMIDE
     Route: 065
  17. DIASTAT [Concomitant]
     Active Substance: DIAZEPAM
     Indication: PRODUCT USED FOR UNKNOWN INDICATION
     Route: 065
  18. BRIVACT [Concomitant]
     Indication: PRODUCT USED FOR UNKNOWN INDICATION
     Route: 065

REACTIONS (4)
  - Vomiting [Recovered/Resolved]
  - Hypotonia [Unknown]
  - Oxygen saturation decreased [Unknown]
  - Pneumonia aspiration [Unknown]

NARRATIVE: CASE EVENT DATE: 20200106
